FAERS Safety Report 21011333 (Version 5)
Quarter: 2022Q3

REPORT INFORMATION
  Report Type: Spontaneous
  Country: US (occurrence: US)
  Receive Date: 20220627
  Receipt Date: 20220906
  Transmission Date: 20221026
  Serious: Yes (Hospitalization, Other)
  Sender: FDA-Public Use
  Company Number: US-BRISTOL-MYERS SQUIBB COMPANY-2022-057359

PATIENT
  Age: 73 Year
  Sex: Male

DRUGS (1)
  1. REVLIMID [Suspect]
     Active Substance: LENALIDOMIDE
     Indication: Plasma cell myeloma
     Dosage: 21 DAYS ON, 7 DAYS OFF OF 28 DAY CYCLE
     Route: 048
     Dates: start: 20220105, end: 20220407

REACTIONS (3)
  - Diarrhoea [Unknown]
  - Aneurysm [Unknown]
  - Treatment noncompliance [Unknown]
